FAERS Safety Report 7711998-8 (Version None)
Quarter: 2011Q3

REPORT INFORMATION
  Report Type: 
  Country: None (occurrence: None)
  Receive Date: 20110826
  Receipt Date: 20110824
  Transmission Date: 20111222
  Serious: Yes (Other)
  Sender: FDA-Public Use
  Company Number: US-PFIZER INC-2011197179

PATIENT
  Sex: Female
  Weight: 42.6 kg

DRUGS (1)
  1. DEPO-PROVERA [Suspect]
     Indication: CONTRACEPTION
     Dosage: 150 MG, EVERY TWELVE WEEKS
     Route: 030
     Dates: start: 20101101, end: 20110314

REACTIONS (2)
  - INJECTION SITE REACTION [None]
  - INJECTION SITE NECROSIS [None]
